FAERS Safety Report 8940531 (Version 1)
Quarter: 2012Q4

REPORT INFORMATION
  Report Type: 
  Country: AU (occurrence: AU)
  Receive Date: 20121203
  Receipt Date: 20121203
  Transmission Date: 20130627
  Serious: Yes (Life-Threatening, Other)
  Sender: FDA-Public Use
  Company Number: AU-ASTRAZENECA-2012SE89772

PATIENT
  Age: 62 Year
  Sex: Female

DRUGS (4)
  1. PROPOFOL [Suspect]
     Route: 042
     Dates: start: 20121028, end: 20121028
  2. SUXAMETHONIUM [Suspect]
     Dosage: TOTAL DOSE 100 MG
     Dates: start: 20121028, end: 20121028
  3. ALFENTANIL HYDROCHLORIDE [Suspect]
     Dates: start: 20121028, end: 20121028
  4. MIDAZOLAM [Suspect]
     Dates: start: 20121028, end: 20121028

REACTIONS (5)
  - End-tidal CO2 decreased [Recovered/Resolved]
  - Femoral pulse decreased [Recovered/Resolved]
  - Sinus tachycardia [Recovered/Resolved]
  - Rash generalised [Recovered/Resolved]
  - Anaphylactic reaction [Recovered/Resolved]
